FAERS Safety Report 5181706-6 (Version None)
Quarter: 2006Q4

REPORT INFORMATION
  Report Type: 
  Country: None (occurrence: None)
  Receive Date: 20061220
  Receipt Date: 20060227
  Transmission Date: 20070319
  Serious: Yes (Other)
  Sender: FDA-Public Use
  Company Number: US-GLAXOSMITHKLINE-A0595277A

PATIENT
  Age: 53 Year
  Sex: Male

DRUGS (2)
  1. COMMIT [Suspect]
     Dosage: 2MG UNKNOWN
  2. COMMIT [Suspect]
     Dosage: 4MG UNKNOWN

REACTIONS (2)
  - DRUG ABUSER [None]
  - HEADACHE [None]
